FAERS Safety Report 9268932 (Version 2)
Quarter: 2013Q2

REPORT INFORMATION
  Report Type: Spontaneous
  Country: TW (occurrence: TW)
  Receive Date: 20130503
  Receipt Date: 20130506
  Transmission Date: 20140414
  Serious: Yes (Hospitalization, Other)
  Sender: FDA-Public Use
  Company Number: TW-009507513-1304TWN016303

PATIENT
  Age: 32 Year
  Sex: Male
  Weight: 51 kg

DRUGS (4)
  1. ISENTRESS [Suspect]
     Indication: HIV INFECTION
     Dosage: 400 MG, BID
     Route: 048
     Dates: start: 20111115, end: 20111122
  2. DIDANOSINE [Suspect]
     Indication: HIV INFECTION
     Dosage: 400 MG, QD
     Dates: start: 200704, end: 20111122
  3. LAMIVUDINE [Suspect]
     Indication: HIV INFECTION
     Dosage: 150 MG, BID
     Dates: start: 200704, end: 20111122
  4. LOPINAVIR (+) RITONAVIR [Concomitant]
     Indication: HIV INFECTION
     Dosage: 400/100 MG TWICE DAILY
     Dates: start: 200704, end: 20111115

REACTIONS (3)
  - Hyperlactacidaemia [Recovered/Resolved]
  - Rhabdomyolysis [Recovered/Resolved]
  - Adverse drug reaction [Recovered/Resolved]
